FAERS Safety Report 5045492-2 (Version None)
Quarter: 2006Q2

REPORT INFORMATION
  Report Type: 
  Country: None (occurrence: None)
  Receive Date: 20060601
  Receipt Date: 20060331
  Transmission Date: 20061013
  Serious: No
  Sender: FDA-Public Use
  Company Number: 2006-BP-03758BP

PATIENT
  Age: 82 Year
  Sex: Male

DRUGS (3)
  1. SPIRIVA [Suspect]
     Indication: EMPHYSEMA
     Dosage: 18 MG (18 MG, 1 PUFF), IH
     Route: 055
     Dates: start: 20060201, end: 20060401
  2. ALBUTEROL SPIROS [Concomitant]
  3. COUMADIN [Concomitant]

REACTIONS (1)
  - DRUG INEFFECTIVE [None]
